FAERS Safety Report 8887623 (Version 1)
Quarter: 2012Q4

REPORT INFORMATION
  Report Type: Spontaneous
  Country: US (occurrence: None)
  Receive Date: 20121101
  Receipt Date: 20121101
  Transmission Date: 20130627
  Serious: Yes (Disabling)
  Sender: FDA-Public Use
  Company Number: None

PATIENT
  Age: 23 Year
  Sex: Female
  Weight: 86.18 kg

DRUGS (1)
  1. BENZTROPINE [Suspect]
     Indication: SPASMODIC TORTICOLLIS
     Dosage: 1 2 x day po
     Route: 048
     Dates: start: 20120928, end: 20121004

REACTIONS (8)
  - Visual impairment [None]
  - Vision blurred [None]
  - Visual field defect [None]
  - Eye disorder [None]
  - Visual impairment [None]
  - Asthenopia [None]
  - Eye pain [None]
  - Cycloplegia [None]
